FAERS Safety Report 7824605-0 (Version None)
Quarter: 2011Q4

REPORT INFORMATION
  Report Type: 
  Country: None (occurrence: None)
  Receive Date: 20111019
  Receipt Date: 20111012
  Transmission Date: 20120403
  Serious: Yes (Life-Threatening, Hospitalization)
  Sender: FDA-Public Use
  Company Number: GB-TEVA-304908ISR

PATIENT
  Age: 14 Year
  Sex: Male
  Weight: 67 kg

DRUGS (3)
  1. AMOXICILLIN [Suspect]
     Dosage: STARTED TWO WEEKS PRIOR TO REACTION.
     Dates: start: 20110601
  2. CARBAMAZEPINE [Suspect]
     Indication: CONVULSION
     Dosage: 100MG INCREASED TO 200MG AFTER 2 AND A HALF WEEKS ON TREATMENT.
     Route: 048
     Dates: start: 20110601
  3. ACETAMINOPHEN [Concomitant]

REACTIONS (1)
  - DRUG RASH WITH EOSINOPHILIA AND SYSTEMIC SYMPTOMS [None]
